FAERS Safety Report 15277338 (Version 1)
Quarter: 2018Q3

REPORT INFORMATION
  Report Type: Spontaneous
  Country: US (occurrence: US)
  Receive Date: 20180814
  Receipt Date: 20180814
  Transmission Date: 20181010
  Serious: Yes (Other)
  Sender: FDA-Public Use
  Company Number: US-009507513-1808USA004922

PATIENT
  Sex: Male

DRUGS (2)
  1. JANUVIA [Suspect]
     Active Substance: SITAGLIPTIN PHOSPHATE
     Dosage: 50 MG, PER DAY
     Route: 048
  2. JANUVIA [Suspect]
     Active Substance: SITAGLIPTIN PHOSPHATE
     Dosage: 25 MG, PER DAY
     Route: 048

REACTIONS (1)
  - Renal impairment [Not Recovered/Not Resolved]
